FAERS Safety Report 25675541 (Version 1)
Quarter: 2025Q3

REPORT INFORMATION
  Report Type: Spontaneous
  Country: US (occurrence: US)
  Receive Date: 20250813
  Receipt Date: 20250813
  Transmission Date: 20251020
  Serious: Yes (Other)
  Sender: BAYER HEALTHCARE PHARMACEUTICALS INC.
  Company Number: US-BAYER-2025A106208

PATIENT
  Sex: Male

DRUGS (3)
  1. KOVALTRY [Suspect]
     Active Substance: ANTIHEMOPHILIC FACTOR, HUMAN RECOMBINANT
     Route: 042
  2. VITAMIN C [Concomitant]
     Active Substance: ASCORBIC ACID
  3. IRON [Concomitant]
     Active Substance: IRON

REACTIONS (2)
  - Haemorrhage [None]
  - Blood iron decreased [None]
